FAERS Safety Report 6217927-0 (Version None)
Quarter: 2009Q2

REPORT INFORMATION
  Report Type: 
  Country: None (occurrence: None)
  Receive Date: 20090608
  Receipt Date: 20090601
  Transmission Date: 20091009
  Serious: Yes (Death, Hospitalization)
  Sender: FDA-Public Use
  Company Number: PHHO2009US06751

PATIENT
  Sex: Male
  Weight: 106.1 kg

DRUGS (1)
  1. RAD 666 RAD+TAB [Suspect]
     Indication: HEART TRANSPLANT
     Dosage: 1.5 MG, BID
     Route: 048
     Dates: start: 19991016

REACTIONS (3)
  - CIRCULATORY COLLAPSE [None]
  - CONCOMITANT DISEASE PROGRESSION [None]
  - HEPATIC NEOPLASM MALIGNANT [None]
